FAERS Safety Report 18851088 (Version 1)
Quarter: 2021Q1

REPORT INFORMATION
  Report Type: Spontaneous
  Country: US (occurrence: US)
  Receive Date: 20210205
  Receipt Date: 20210205
  Transmission Date: 20210420
  Serious: No
  Sender: FDA-Public Use
  Company Number: US-009507513-2101USA001688

PATIENT
  Age: 68 Year
  Sex: Female

DRUGS (1)
  1. PRINIVIL [Suspect]
     Active Substance: LISINOPRIL
     Indication: NEPHROPATHY
     Dosage: UNK
     Route: 048

REACTIONS (1)
  - Product use in unapproved indication [Unknown]
